FAERS Safety Report 7052407-4 (Version None)
Quarter: 2010Q4

REPORT INFORMATION
  Report Type: 
  Country: None (occurrence: None)
  Receive Date: 20101019
  Receipt Date: 20101008
  Transmission Date: 20110411
  Serious: Yes (Hospitalization)
  Sender: FDA-Public Use
  Company Number: PHHO2010JP02740

PATIENT
  Sex: Male
  Weight: 66 kg

DRUGS (24)
  1. PLACEBO COMP-PLA+ [Suspect]
     Indication: PANCREATIC NEUROENDOCRINE TUMOUR
     Dosage: PLACEBO
     Route: 048
     Dates: start: 20090401, end: 20091218
  2. RAD001 [Suspect]
     Indication: PANCREATIC NEUROENDOCRINE TUMOUR
     Dosage: 10 MG
     Route: 048
     Dates: start: 20091218, end: 20100216
  3. RAD001 [Suspect]
     Dosage: 10 MG
     Route: 048
     Dates: start: 20100305, end: 20100929
  4. SANDOSTATIN LAR [Concomitant]
     Indication: PANCREATIC NEUROENDOCRINE TUMOUR
     Dosage: UNK
     Dates: start: 20080823
  5. ZOMETA [Concomitant]
     Indication: METASTASES TO BONE
     Dosage: UNK
     Dates: start: 20090407
  6. PANCREAZE [Concomitant]
  7. PANCREATIN [Concomitant]
  8. ROCALTROL [Concomitant]
  9. MYSLEE [Concomitant]
  10. CINAL [Concomitant]
     Indication: ASTHENOPIA
  11. VITANEURIN [Concomitant]
     Indication: ASTHENOPIA
  12. ADETPHOS [Concomitant]
     Indication: ASTHENOPIA
  13. METHYCOBAL [Concomitant]
     Indication: ASTHENOPIA
  14. AMITRIPTYLINE HCL [Concomitant]
     Indication: HEADACHE
  15. NOVORAPID [Concomitant]
     Indication: DIABETES MELLITUS
  16. LOXOPROFEN [Concomitant]
     Indication: PAIN
  17. OPSO DAINIPPON [Concomitant]
  18. KETOPROFEN [Concomitant]
     Indication: PAIN
  19. SELBEX [Concomitant]
     Indication: GASTRITIS PROPHYLAXIS
  20. BASEN [Concomitant]
     Indication: DIABETES MELLITUS
  21. PENTAZOCINE LACTATE [Concomitant]
  22. CABASER [Concomitant]
     Dosage: UNK
     Dates: start: 20090627
  23. MUCOSTA [Concomitant]
     Dosage: UNK
     Dates: start: 20100120
  24. SERENACE [Concomitant]
     Dosage: UNK
     Dates: start: 20100622

REACTIONS (5)
  - ABDOMINAL PAIN [None]
  - DEHYDRATION [None]
  - METASTASES TO BONE [None]
  - MUSCULOSKELETAL PAIN [None]
  - SPINAL COMPRESSION FRACTURE [None]
